FAERS Safety Report 9289965 (Version 1)
Quarter: 2013Q2

REPORT INFORMATION
  Report Type: Spontaneous
  Country: US (occurrence: US)
  Receive Date: 20130515
  Receipt Date: 20130515
  Transmission Date: 20140414
  Serious: Yes (Disabling)
  Sender: FDA-Public Use
  Company Number: US-009507513-1305USA006529

PATIENT
  Sex: Male

DRUGS (2)
  1. PEGINTRON [Suspect]
     Indication: HEPATITIS C
     Dosage: UNK, REDIPEN
     Dates: start: 20130430, end: 20130507
  2. REBETOL [Suspect]
     Indication: HEPATITIS C
     Dosage: UNK
     Dates: start: 20130430, end: 20130507

REACTIONS (6)
  - Gait disturbance [Unknown]
  - Fall [Unknown]
  - Hypoaesthesia [Unknown]
  - Oedema [Unknown]
  - Abdominal pain [Unknown]
  - Headache [Unknown]
